FAERS Safety Report 4343707-7 (Version None)
Quarter: 2004Q2

REPORT INFORMATION
  Report Type: 
  Country: None (occurrence: None)
  Receive Date: 20040419
  Receipt Date: 20040405
  Transmission Date: 20050107
  Serious: Yes (Hospitalization, Other)
  Sender: FDA-Public Use
  Company Number: US-JNJFOC-20031100788

PATIENT
  Age: 77 Year
  Sex: Male
  Weight: 80.2867 kg

DRUGS (27)
  1. REMICADE [Suspect]
     Indication: RHEUMATOID ARTHRITIS
     Dosage: INTRAVENOUS
     Route: 042
     Dates: start: 20021031
  2. REMICADE [Suspect]
     Indication: RHEUMATOID ARTHRITIS
     Dosage: INTRAVENOUS
     Route: 042
     Dates: start: 20021112
  3. MORPHINE [Suspect]
     Indication: PAIN
  4. PHENERGAN [Suspect]
  5. OXYCONTIN [Suspect]
     Indication: PAIN
  6. LIPITOR [Concomitant]
  7. MIACALCIN [Concomitant]
  8. BUMEX [Concomitant]
  9. SODIUM CHLORIDE [Concomitant]
  10. FOLIC ACID [Concomitant]
  11. LOTENSIN [Concomitant]
  12. FLOMAX [Concomitant]
  13. OXYCONTIN [Concomitant]
  14. NORVASC [Concomitant]
  15. HYDROCODONE (HYDROCODONE) [Concomitant]
  16. PREDNISONE [Concomitant]
  17. CALTRATE (CALCIUM CARBONATE) [Concomitant]
  18. PLAQUENIL [Concomitant]
  19. MAGIC MOUTH WASH (ANTISEPTICS) [Concomitant]
  20. MECLIZINE [Concomitant]
  21. ALLEGRA [Concomitant]
  22. FOLIC ACID [Concomitant]
  23. CALTRATE (CALCIUM CARBONATE) [Concomitant]
  24. NEOSPORIN (NEOSPORIN POWDER) [Concomitant]
  25. VIOXX [Concomitant]
  26. CELEBREX [Concomitant]
  27. MOTRIN [Concomitant]

REACTIONS (57)
  - ACTIVITIES OF DAILY LIVING IMPAIRED [None]
  - AGGRESSION [None]
  - ANHEDONIA [None]
  - ANOREXIA [None]
  - ASPIRATION [None]
  - BACK PAIN [None]
  - CANDIDURIA [None]
  - CONDITION AGGRAVATED [None]
  - CONFUSIONAL STATE [None]
  - DEEP VEIN THROMBOSIS [None]
  - DEHYDRATION [None]
  - DEPRESSED LEVEL OF CONSCIOUSNESS [None]
  - DIARRHOEA [None]
  - DIFFICULTY IN WALKING [None]
  - DIZZINESS [None]
  - DRUG INEFFECTIVE [None]
  - DYSPHAGIA [None]
  - ECCHYMOSIS [None]
  - EMOTIONAL DISTRESS [None]
  - ERYTHEMA [None]
  - FAECAL OCCULT BLOOD POSITIVE [None]
  - FEBRILE INFECTION [None]
  - GASTRITIS [None]
  - HELICOBACTER INFECTION [None]
  - HEPATIC ENZYME INCREASED [None]
  - HYPERTENSION [None]
  - IMPAIRED HEALING [None]
  - INCONTINENCE [None]
  - INJURY [None]
  - INNER EAR DISORDER [None]
  - JOINT DISLOCATION [None]
  - LETHARGY [None]
  - LUNG INFILTRATION [None]
  - MEDICAL DEVICE COMPLICATION [None]
  - MEDICATION ERROR [None]
  - MENTAL STATUS CHANGES [None]
  - MYOCARDIAL ISCHAEMIA [None]
  - NECROTISING GRANULOMATOUS LYMPHADENITIS [None]
  - OEDEMA PERIPHERAL [None]
  - PAIN [None]
  - PARAESTHESIA [None]
  - PLEURAL EFFUSION [None]
  - PNEUMONITIS [None]
  - PULMONARY TUBERCULOSIS [None]
  - PYREXIA [None]
  - RASH GENERALISED [None]
  - RASH PRURITIC [None]
  - RENAL ATROPHY [None]
  - RENAL CYST [None]
  - SCAB [None]
  - SKIN DISORDER [None]
  - SKIN LACERATION [None]
  - SPINAL COMPRESSION FRACTURE [None]
  - STOMATITIS [None]
  - UPPER RESPIRATORY TRACT INFECTION [None]
  - URINARY TRACT INFECTION [None]
  - WOUND [None]
